FAERS Safety Report 4439156-3 (Version None)
Quarter: 2004Q3

REPORT INFORMATION
  Report Type: 
  Country: None (occurrence: None)
  Receive Date: 20040831
  Receipt Date: 20040824
  Transmission Date: 20050211
  Serious: Yes (Other)
  Sender: FDA-Public Use
  Company Number: 002514

PATIENT
  Age: 56 Year
  Sex: Female

DRUGS (5)
  1. MEDROXYPROGESTERONE ACETATE (MEDROXYPROGESTERONE ACETATE)TABLETS [Suspect]
     Dates: start: 19961201, end: 19971101
  2. PREMARIN [Suspect]
     Dates: start: 19961201, end: 19971101
  3. PROVERA [Suspect]
     Dates: start: 19961201, end: 19971101
  4. PREMPRO [Suspect]
     Dates: start: 19971101, end: 20020401
  5. CYCRIN [Suspect]
     Dates: start: 19961201, end: 19971101

REACTIONS (1)
  - BREAST CANCER FEMALE [None]
